FAERS Safety Report 9418882 (Version 1)
Quarter: 2013Q3

REPORT INFORMATION
  Report Type: Spontaneous
  Country: US (occurrence: US)
  Receive Date: 20130725
  Receipt Date: 20130725
  Transmission Date: 20140515
  Serious: No
  Sender: FDA-Public Use
  Company Number: US-BAYER-2013-089824

PATIENT
  Age: 71 Year
  Sex: Female
  Weight: 67.12 kg

DRUGS (4)
  1. ALEVE CAPLET [Suspect]
     Indication: BACK PAIN
     Dosage: 1 DF, PRN
     Route: 048
  2. ZETIA [Concomitant]
  3. MEVACOR [Concomitant]
  4. TRIVITAN [Concomitant]

REACTIONS (1)
  - Intraocular pressure increased [Not Recovered/Not Resolved]
